FAERS Safety Report 22083346 (Version 1)
Quarter: 2023Q1

REPORT INFORMATION
  Report Type: Spontaneous
  Country: NZ (occurrence: NZ)
  Receive Date: 20230310
  Receipt Date: 20230310
  Transmission Date: 20230418
  Serious: Yes (Death, Hospitalization, Other)
  Sender: FDA-Public Use
  Company Number: NZ-Accord-303466

PATIENT
  Age: 64 Year
  Sex: Male

DRUGS (2)
  1. METHOTREXATE [Suspect]
     Active Substance: METHOTREXATE
     Indication: Central nervous system lymphoma
     Dosage: HIGH DOSE METHOTREXATE??RECEIVED 7 CYCLES
  2. RITUXIMAB [Suspect]
     Active Substance: RITUXIMAB
     Indication: Central nervous system lymphoma
     Dosage: RECEIVED 7 CYCLES

REACTIONS (7)
  - Leukoencephalopathy [Fatal]
  - Pneumonia [Unknown]
  - Diverticulitis [Unknown]
  - Gastroenteritis clostridial [Unknown]
  - Deep vein thrombosis [Unknown]
  - Groin infection [Unknown]
  - Infection [Fatal]
